FAERS Safety Report 5939384-1 (Version None)
Quarter: 2008Q4

REPORT INFORMATION
  Report Type: 
  Country: None (occurrence: None)
  Receive Date: 20081103
  Receipt Date: 20081028
  Transmission Date: 20090506
  Serious: No
  Sender: FDA-Public Use
  Company Number: US-B.I. PHARMACEUTICALS,INC./RIDGEFIELD-2008-BP-16404BP

PATIENT
  Sex: Male

DRUGS (4)
  1. CATAPRES-TTS-1 [Suspect]
     Indication: HYPERTENSION
     Dosage: .2MG
     Dates: start: 20080101, end: 20081027
  2. CATAPRES-TTS-1 [Suspect]
     Dosage: .3MG
     Route: 062
     Dates: start: 20081027
  3. BYSTOLIC [Concomitant]
     Indication: HYPERTENSION
     Route: 048
  4. PEPCID AC [Concomitant]
     Route: 048

REACTIONS (1)
  - BLOOD PRESSURE INADEQUATELY CONTROLLED [None]
